FAERS Safety Report 8735038 (Version 2)
Quarter: 2012Q4

REPORT INFORMATION
  Report Type: 
  Country: US (occurrence: US)
  Receive Date: 20120821
  Receipt Date: 20120828
  Transmission Date: 20130627
  Serious: Yes (Other)
  Sender: FDA-Public Use
  Company Number: CHPA2012US018036

PATIENT
  Sex: Female

DRUGS (1)
  1. MAALOX ANTACID/ANTIGAS MAX QDTABS WILDB [Suspect]
     Indication: GASTROINTESTINAL DISORDER
     Dosage: 1-4 tablets, as needed
     Route: 048
     Dates: start: 2009

REACTIONS (5)
  - Liver disorder [Recovered/Resolved]
  - Nephrolithiasis [Recovered/Resolved]
  - Renal cyst [Recovered/Resolved]
  - Abdominal pain upper [Unknown]
  - Off label use [Unknown]
